FAERS Safety Report 7773843 (Version 9)
Quarter: 2013Q1

REPORT INFORMATION
  Report Type: Spontaneous
  Country: US (occurrence: US)
  Receive Date: 20110125
  Receipt Date: 20130313
  Transmission Date: 20140127
  Serious: Yes (Hospitalization, Other)
  Sender: FDA-Public Use
  Company Number: US-ASTRAZENECA-2010SE59806

PATIENT
  Age: 61 Year
  Sex: Female

DRUGS (2)
  1. NEXIUM [Suspect]
     Route: 048
  2. POTASSIUM [Concomitant]
     Route: 042

REACTIONS (13)
  - Urinary tract infection [Unknown]
  - Weight decreased [Unknown]
  - Renal disorder [Unknown]
  - Plantar fasciitis [Unknown]
  - Blood potassium abnormal [Unknown]
  - Cardiac disorder [Unknown]
  - Gastric disorder [Unknown]
  - Pain [Unknown]
  - Cystitis [Unknown]
  - Urine potassium increased [Unknown]
  - Anxiety [Unknown]
  - Malaise [Unknown]
  - Abdominal discomfort [Unknown]
